FAERS Safety Report 20438147 (Version 1)
Quarter: 2022Q1

REPORT INFORMATION
  Report Type: Spontaneous
  Country: DE (occurrence: DE)
  Receive Date: 20220207
  Receipt Date: 20220207
  Transmission Date: 20220424
  Serious: Yes (Hospitalization)
  Sender: FDA-Public Use
  Company Number: None

PATIENT
  Age: 71 Year
  Sex: Male

DRUGS (17)
  1. PREGABALIN [Suspect]
     Active Substance: PREGABALIN
     Indication: Product used for unknown indication
     Dosage: UNK
     Route: 048
  2. VENLAFAXINE [Suspect]
     Active Substance: VENLAFAXINE HYDROCHLORIDE
     Indication: Product used for unknown indication
     Dosage: UNK
     Route: 048
  3. HYDROMORPHONE [Suspect]
     Active Substance: HYDROMORPHONE
     Indication: Product used for unknown indication
     Dosage: UNK
     Route: 058
  4. TIOTROPIUM BROMIDE [Suspect]
     Active Substance: TIOTROPIUM BROMIDE
     Indication: Product used for unknown indication
     Dosage: UNK
     Route: 065
  5. Acetylsalicylic Acid [Acetylsalicylic Acid] [Concomitant]
     Indication: Product used for unknown indication
     Dosage: UNK
     Route: 048
  6. Alendronsaure [Alendronic Acid] [Concomitant]
     Indication: Product used for unknown indication
     Dosage: UNK
     Route: 058
  7. Colecalciferol [Colecalciferol] [Concomitant]
     Indication: Product used for unknown indication
     Dosage: UNK
     Route: 058
  8. FUROSEMIDE [Concomitant]
     Active Substance: FUROSEMIDE
     Indication: Product used for unknown indication
     Dosage: UNK
     Route: 048
  9. Levetiracetam [Levetiracetam] [Concomitant]
     Indication: Product used for unknown indication
     Dosage: UNK
     Route: 048
  10. Lorazepam [Lorazepam] [Concomitant]
     Indication: Product used for unknown indication
     Dosage: UNK
     Route: 060
  11. METAMIZOL [Concomitant]
     Active Substance: METAMIZOLE SODIUM
     Indication: Product used for unknown indication
     Dosage: UNK
     Route: 048
  12. Mirtazapin [Mirtazapine] [Concomitant]
     Indication: Product used for unknown indication
     Dosage: UNK
     Route: 048
  13. Naloxegol [Naloxegol] [Concomitant]
     Indication: Product used for unknown indication
     Dosage: UNK
     Route: 048
  14. PANTOPRAZOLE [Concomitant]
     Active Substance: PANTOPRAZOLE
     Indication: Product used for unknown indication
     Dosage: UNK
     Route: 048
  15. Roflumilast [Roflumilast] [Concomitant]
     Indication: Product used for unknown indication
     Dosage: UNK
     Route: 048
  16. Symbicort 160 Mikrogramm/4,5 Mikrogramm [Budesonide, Formoterol] [Concomitant]
     Indication: Product used for unknown indication
     Dosage: UNK
     Route: 055
  17. Trospium [Trospium] [Concomitant]
     Indication: Product used for unknown indication
     Dosage: UNK
     Route: 048

REACTIONS (2)
  - Flatulence [Recovering/Resolving]
  - Constipation [Recovering/Resolving]
